FAERS Safety Report 10149734 (Version 1)
Quarter: 2014Q2

REPORT INFORMATION
  Report Type: Spontaneous
  Country: US (occurrence: None)
  Receive Date: 20140501
  Receipt Date: 20140501
  Transmission Date: 20141212
  Serious: Yes (Disabling)
  Sender: FDA-Public Use
  Company Number: None

PATIENT
  Age: 66 Year
  Sex: Female
  Weight: 74.84 kg

DRUGS (7)
  1. LEVOTHYROXIN [Suspect]
     Indication: HYPOTHYROIDISM
     Dosage: 88 MCG -} 100 MCG ON 12/27/13 ?1 TABLET ?7:30 A.M. ONCE/DAY ?
     Route: 048
     Dates: start: 20130729, end: 20140212
  2. SYNTHROID [Concomitant]
  3. CENTRUM SILVER VITS [Concomitant]
  4. CALCIUM [Concomitant]
  5. VIT. D3 [Concomitant]
  6. FISH OIL [Concomitant]
  7. ZYRTEC [Concomitant]

REACTIONS (4)
  - Angioedema [None]
  - Cheilitis [None]
  - Product substitution issue [None]
  - Lip swelling [None]
